FAERS Safety Report 8828211 (Version 1)
Quarter: 2012Q4

REPORT INFORMATION
  Report Type: 
  Country: BR (occurrence: BR)
  Receive Date: 20121008
  Receipt Date: 20121008
  Transmission Date: 20130627
  Serious: Yes (Death, Hospitalization, Other)
  Sender: FDA-Public Use
  Company Number: PHHY2012BR087475

PATIENT
  Sex: Male

DRUGS (2)
  1. EXELON PATCH [Suspect]
     Indication: DEMENTIA ALZHEIMER^S TYPE
     Dosage: 4.6 mg/ 24hrs
     Route: 062
  2. PROLOPA [Concomitant]

REACTIONS (3)
  - Pneumonia [Fatal]
  - Cardio-respiratory arrest [Fatal]
  - Nosocomial infection [Unknown]
